FAERS Safety Report 10180155 (Version 1)
Quarter: 2014Q2

REPORT INFORMATION
  Report Type: Spontaneous
  Country: US (occurrence: US)
  Receive Date: 20140519
  Receipt Date: 20140519
  Transmission Date: 20141212
  Serious: No
  Sender: FDA-Public Use
  Company Number: US-AMGEN INC.-USASP2013079263

PATIENT
  Age: 55 Year
  Sex: Female

DRUGS (6)
  1. PROLIA [Suspect]
     Indication: OSTEOPOROSIS POSTMENOPAUSAL
     Dosage: UNK
     Route: 065
     Dates: start: 20120509
  2. SYNTHROID [Concomitant]
     Indication: HYPOTHYROIDISM
     Dosage: UNK
     Route: 065
  3. VITAMIN D                          /00107901/ [Concomitant]
     Dosage: UNK UNK, QD
     Route: 065
  4. BABY ASPIRIN [Concomitant]
     Dosage: UNK
     Route: 065
  5. MIRALAX                            /00754501/ [Concomitant]
     Dosage: UNK
     Route: 065
  6. RESTASIS [Concomitant]
     Dosage: UNK
     Route: 065

REACTIONS (4)
  - Rash macular [Not Recovered/Not Resolved]
  - Body tinea [Unknown]
  - Nail disorder [Unknown]
  - Rash pruritic [Not Recovered/Not Resolved]
